FAERS Safety Report 9137754 (Version 1)
Quarter: 2013Q1

REPORT INFORMATION
  Report Type: Spontaneous
  Country: MX (occurrence: MX)
  Receive Date: 20130304
  Receipt Date: 20130304
  Transmission Date: 20140127
  Serious: Yes (Other)
  Sender: FDA-Public Use
  Company Number: PHHY2012MX074614

PATIENT
  Sex: Male

DRUGS (1)
  1. RITALIN LA [Suspect]
     Indication: IRRITABLE BOWEL SYNDROME
     Dosage: 1 TABLET ONCE PER DAY (20 MG PER DAY)
     Dates: start: 20120625, end: 201212

REACTIONS (2)
  - Renal tubular acidosis [Not Recovered/Not Resolved]
  - Drug ineffective [Recovered/Resolved]
